FAERS Safety Report 6537151-1 (Version None)
Quarter: 2010Q1

REPORT INFORMATION
  Report Type: 
  Country: None (occurrence: None)
  Receive Date: 20100114
  Receipt Date: 20100106
  Transmission Date: 20100710
  Serious: Yes (Hospitalization)
  Sender: FDA-Public Use
  Company Number: US-ELI_LILLY_AND_COMPANY-US200908000915

PATIENT
  Sex: Male
  Weight: 77 kg

DRUGS (19)
  1. PEMETREXED [Suspect]
     Indication: NON-SMALL CELL LUNG CANCER
     Dosage: 375 MG/M2, OTHER
     Route: 042
     Dates: start: 20090708, end: 20090803
  2. PEMETREXED [Suspect]
     Dosage: 281.25 MG/M2, OTHER
     Route: 042
     Dates: start: 20090819
  3. TARCEVA [Suspect]
     Indication: NON-SMALL CELL LUNG CANCER
     Dosage: 100 MG, OTHER
     Route: 048
     Dates: start: 20090709, end: 20090729
  4. TARCEVA [Suspect]
     Dosage: 50 MG, DAILY (1/D)
     Route: 048
     Dates: start: 20090806, end: 20090826
  5. LISINOPRIL [Concomitant]
     Dosage: UNK, UNKNOWN
     Route: 065
  6. METOPROLOL [Concomitant]
     Dosage: UNK, UNKNOWN
     Route: 065
  7. IMDUR [Concomitant]
     Dosage: UNK, UNKNOWN
     Route: 065
  8. PLAVIX [Concomitant]
     Dosage: UNK, UNKNOWN
     Route: 065
  9. PRAVASTATIN [Concomitant]
     Dosage: UNK, UNKNOWN
     Route: 065
  10. ASPIRIN [Concomitant]
     Dosage: UNK, UNKNOWN
     Route: 065
  11. ARICEPT [Concomitant]
     Dosage: UNK, UNKNOWN
     Route: 065
  12. COLACE [Concomitant]
     Dosage: UNK, UNKNOWN
     Route: 065
  13. VITAMIN D [Concomitant]
     Dosage: UNK, UNKNOWN
     Route: 065
  14. ADVAIR DISKUS 100/50 [Concomitant]
     Dosage: UNK, UNKNOWN
     Route: 065
  15. SPIRIVA [Concomitant]
     Dosage: UNK, UNKNOWN
     Route: 065
  16. PREDNISONE [Concomitant]
     Dosage: UNK, UNKNOWN
     Route: 065
  17. BENADRYL [Concomitant]
     Dosage: UNK, UNKNOWN
     Route: 065
  18. VITAMIN B-12 [Concomitant]
     Dosage: UNK, UNKNOWN
     Route: 065
  19. FOLATE [Concomitant]
     Dosage: UNK, UNKNOWN
     Route: 065

REACTIONS (1)
  - ENTERITIS [None]
